FAERS Safety Report 16278213 (Version 3)
Quarter: 2023Q2

REPORT INFORMATION
  Report Type: Spontaneous
  Country: US (occurrence: None)
  Receive Date: 20190506
  Receipt Date: 20230501
  Transmission Date: 20230722
  Serious: Yes (Death, Other)
  Sender: FDA-Public Use
  Company Number: 2019SE61408

PATIENT
  Age: 22884 Day
  Sex: Male
  Weight: 122.5 kg

DRUGS (54)
  1. PRILOSEC [Suspect]
     Active Substance: OMEPRAZOLE MAGNESIUM
     Indication: Gastrooesophageal reflux disease
     Route: 048
  2. PRILOSEC [Suspect]
     Active Substance: OMEPRAZOLE MAGNESIUM
     Indication: Gastrooesophageal reflux disease
     Route: 048
     Dates: start: 2012, end: 2017
  3. PREVACID [Suspect]
     Active Substance: LANSOPRAZOLE
     Indication: Gastrooesophageal reflux disease
  4. PREVACID [Suspect]
     Active Substance: LANSOPRAZOLE
     Indication: Gastrooesophageal reflux disease
     Dates: start: 2012, end: 2017
  5. PROTONIX [Suspect]
     Active Substance: PANTOPRAZOLE SODIUM
     Indication: Gastrooesophageal reflux disease
  6. PROTONIX [Suspect]
     Active Substance: PANTOPRAZOLE SODIUM
     Indication: Gastrooesophageal reflux disease
     Dates: start: 2012, end: 2017
  7. PROTONIX [Suspect]
     Active Substance: PANTOPRAZOLE SODIUM
     Indication: Gastrooesophageal reflux disease
     Dosage: GENERIC
     Dates: end: 2016
  8. PROTONIX [Suspect]
     Active Substance: PANTOPRAZOLE SODIUM
     Indication: Gastrooesophageal reflux disease
     Dosage: GENERIC
     Route: 048
     Dates: start: 20141023
  9. NEURONTIN [Concomitant]
     Active Substance: GABAPENTIN
     Indication: Epilepsy
  10. LANTUS [Concomitant]
     Active Substance: INSULIN GLARGINE
     Indication: Diabetes mellitus
  11. INSULIN LISPRO [Concomitant]
     Active Substance: INSULIN LISPRO
     Indication: Diabetes mellitus
  12. LEVOTHYROXINE [Concomitant]
     Active Substance: LEVOTHYROXINE
     Indication: Hypothyroidism
     Route: 065
     Dates: start: 20150507
  13. OXYCODONE [Concomitant]
     Active Substance: OXYCODONE
     Indication: Pain
     Route: 065
     Dates: start: 20141023
  14. ZOFRAN [Concomitant]
     Active Substance: ONDANSETRON HYDROCHLORIDE
     Indication: Nausea
  15. DOCUSATE [Concomitant]
     Active Substance: DOCUSATE
     Indication: Constipation
  16. NORVASC [Concomitant]
     Active Substance: AMLODIPINE BESYLATE
     Indication: Blood pressure abnormal
  17. HYDROMORPHONE [Concomitant]
     Active Substance: HYDROMORPHONE
     Indication: Pain
  18. LORAZEPAM [Concomitant]
     Active Substance: LORAZEPAM
     Indication: Anxiety
  19. ASPIRIN [Concomitant]
     Active Substance: ASPIRIN
     Indication: Pain
  20. MIRALAX [Concomitant]
     Active Substance: POLYETHYLENE GLYCOL 3350
     Indication: Constipation
  21. ACETAMINOPHEN [Concomitant]
     Active Substance: ACETAMINOPHEN
     Indication: Pain
  22. TUMS [Concomitant]
     Active Substance: CALCIUM CARBONATE
     Indication: Dyspepsia
  23. MILK OF MAGNESIA [Concomitant]
     Active Substance: MAGNESIUM HYDROXIDE
  24. SILVER SULFA [Concomitant]
  25. METOPROLOL [Concomitant]
     Active Substance: METOPROLOL
  26. FUROSEMIDE [Concomitant]
     Active Substance: FUROSEMIDE
  27. CLONIDINE [Concomitant]
     Active Substance: CLONIDINE
  28. BREEZE [Concomitant]
  29. LACTULOSE [Concomitant]
     Active Substance: LACTULOSE
  30. ASCORBIC ACID\BIOTIN\CALCIUM PANTOTHENATE\CYANOCOBALAMIN\FOLIC ACID\NI [Concomitant]
     Active Substance: ASCORBIC ACID\BIOTIN\CALCIUM PANTOTHENATE\CYANOCOBALAMIN\FOLIC ACID\NIACINAMIDE\PYRIDOXINE HYDROCHLO
  31. CHLORHEXIDINE GLUCONATE [Concomitant]
     Active Substance: CHLORHEXIDINE GLUCONATE
  32. METOLAZONE [Concomitant]
     Active Substance: METOLAZONE
  33. CARVEDILOL [Concomitant]
     Active Substance: CARVEDILOL
  34. METHOCARBAMOL [Concomitant]
     Active Substance: METHOCARBAMOL
  35. PROMETHAZINE [Concomitant]
     Active Substance: PROMETHAZINE HYDROCHLORIDE
  36. CEFAZOLIN [Concomitant]
     Active Substance: CEFAZOLIN
  37. CIPROFLOXACIN [Concomitant]
     Active Substance: CIPROFLOXACIN
  38. BACITRACIN [Concomitant]
     Active Substance: BACITRACIN
  39. GENTAMICIN [Concomitant]
     Active Substance: GENTAMICIN
  40. ZEMURON [Concomitant]
     Active Substance: ROCURONIUM BROMIDE
  41. THROMBIN [Concomitant]
     Active Substance: THROMBIN
  42. DIPRIVAN [Concomitant]
     Active Substance: PROPOFOL
  43. VERSED [Concomitant]
     Active Substance: MIDAZOLAM HYDROCHLORIDE
  44. ROBINUL [Concomitant]
     Active Substance: GLYCOPYRROLATE
  45. EPHEDRINE [Concomitant]
     Active Substance: EPHEDRINE
  46. BUPIVACAINE [Concomitant]
     Active Substance: BUPIVACAINE
  47. NEOSPORIN [Concomitant]
     Active Substance: BACITRACIN ZINC\NEOMYCIN SULFATE\POLYMYXIN B SULFATE
  48. REGLAN [Concomitant]
     Active Substance: METOCLOPRAMIDE HYDROCHLORIDE
  49. FENTANYL [Concomitant]
     Active Substance: FENTANYL
  50. THROMBIN [Concomitant]
     Active Substance: THROMBIN
  51. SIMETHICONE (DIMETHICONE) [Concomitant]
     Active Substance: DIMETHICONE
  52. AFRIN [Concomitant]
     Active Substance: OXYMETAZOLINE
  53. COLACE [Concomitant]
     Active Substance: DOCUSATE SODIUM
  54. TYLENOL [Concomitant]
     Active Substance: ACETAMINOPHEN

REACTIONS (9)
  - Type 2 diabetes mellitus [Fatal]
  - End stage renal disease [Fatal]
  - Renal failure [Fatal]
  - Acute kidney injury [Unknown]
  - Chronic kidney disease [Unknown]
  - Nephrogenic anaemia [Unknown]
  - Chronic kidney disease-mineral and bone disorder [Unknown]
  - Renal tubular necrosis [Unknown]
  - Metabolic acidosis [Unknown]

NARRATIVE: CASE EVENT DATE: 20120416
